FAERS Safety Report 23871243 (Version 1)
Quarter: 2024Q2

REPORT INFORMATION
  Report Type: Spontaneous
  Country: US (occurrence: US)
  Receive Date: 20240519
  Receipt Date: 20240519
  Transmission Date: 20240716
  Serious: Yes (Death, Other)
  Sender: FDA-Public Use
  Company Number: US-AMGEN-USASP2024093718

PATIENT
  Age: 34 Year
  Sex: Female

DRUGS (2)
  1. BEVACIZUMAB [Suspect]
     Active Substance: BEVACIZUMAB
     Indication: Malignant glioma
     Dosage: UNK
     Route: 065
  2. LOMUSTINE [Concomitant]
     Active Substance: LOMUSTINE
     Indication: Malignant glioma
     Dosage: UNK
     Route: 065

REACTIONS (4)
  - Malignant glioma [Fatal]
  - Renal impairment [Unknown]
  - Therapy partial responder [Unknown]
  - Off label use [Unknown]
